FAERS Safety Report 17681031 (Version 1)
Quarter: 2020Q2

REPORT INFORMATION
  Report Type: Spontaneous
  Country: US (occurrence: US)
  Receive Date: 20200417
  Receipt Date: 20200417
  Transmission Date: 20200714
  Serious: No
  Sender: FDA-Public Use
  Company Number: US-CELGENEUS-USA-20200403228

PATIENT
  Age: 71 Year
  Sex: Female

DRUGS (3)
  1. OTEZLA [Suspect]
     Active Substance: APREMILAST
     Indication: PSORIATIC ARTHROPATHY
     Dosage: 60 MILLIGRAM
     Route: 048
     Dates: start: 202003
  2. REMICADE [Concomitant]
     Active Substance: INFLIXIMAB
     Route: 065
  3. REMICADE [Concomitant]
     Active Substance: INFLIXIMAB
     Indication: PSORIATIC ARTHROPATHY
     Route: 065
     Dates: start: 20200312, end: 20200312

REACTIONS (4)
  - Pain [Unknown]
  - Pain in extremity [Unknown]
  - Musculoskeletal pain [Unknown]
  - Initial insomnia [Unknown]

NARRATIVE: CASE EVENT DATE: 202003
